FAERS Safety Report 8260008-5 (Version None)
Quarter: 2012Q2

REPORT INFORMATION
  Report Type: 
  Country: None (occurrence: None)
  Receive Date: 20120404
  Receipt Date: 20120404
  Transmission Date: 20120825
  Serious: Yes (Hospitalization)
  Sender: FDA-Public Use
  Company Number: CH-BAYER-2012-032468

PATIENT
  Sex: Female

DRUGS (6)
  1. ASPIRIN [Suspect]
     Indication: MYOCARDIAL ISCHAEMIA
     Dosage: 100 MG, QD
     Route: 048
     Dates: end: 20111129
  2. METO [Concomitant]
     Dosage: 25 MG, QD
     Route: 048
  3. TORSEMIDE [Concomitant]
     Dosage: 10 MG, QD
     Route: 048
  4. ALDACTONE [Concomitant]
     Dosage: 12.5 MG, QD
     Route: 048
  5. PLAVIX [Concomitant]
     Indication: MYOCARDIAL ISCHAEMIA
     Dosage: 75 MG, QD
     Route: 048
     Dates: end: 20111129
  6. ATORVASTATIN CALCIUM [Concomitant]
     Dosage: 40 MG, QD
     Dates: end: 20111129

REACTIONS (1)
  - THROMBOCYTOPENIA [None]
